FAERS Safety Report 5040371-9 (Version None)
Quarter: 2006Q2

REPORT INFORMATION
  Report Type: 
  Country: None (occurrence: None)
  Receive Date: 20060630
  Receipt Date: 20060626
  Transmission Date: 20061013
  Serious: Yes (Hospitalization)
  Sender: FDA-Public Use
  Company Number: 2006PK01368

PATIENT
  Age: 39 Year
  Sex: Male

DRUGS (5)
  1. SEROQUEL [Suspect]
     Route: 048
     Dates: start: 20051104, end: 20051114
  2. BELOC  ZOK [Interacting]
     Route: 048
     Dates: start: 20050101
  3. THEOPHYLLINE [Interacting]
     Route: 048
     Dates: start: 19980101
  4. NEUROCIL [Suspect]
     Route: 048
     Dates: start: 20050512, end: 20051103
  5. SYMBICORT [Concomitant]
     Route: 055
     Dates: start: 19980101

REACTIONS (2)
  - DRUG INTERACTION [None]
  - THROMBOCYTOPENIA [None]
